FAERS Safety Report 10498184 (Version 1)
Quarter: 2014Q4

REPORT INFORMATION
  Report Type: Spontaneous
  Country: US (occurrence: None)
  Receive Date: 20141002
  Receipt Date: 20141002
  Transmission Date: 20150528
  Serious: Yes (Other)
  Sender: FDA-Public Use
  Company Number: 2014VID00046

PATIENT
  Age: 11 Year
  Sex: Male

DRUGS (1)
  1. ACTIMMUNE [Suspect]
     Active Substance: INTERFERON GAMMA-1B

REACTIONS (2)
  - Urticaria [None]
  - Transplant [None]

NARRATIVE: CASE EVENT DATE: 2009
